FAERS Safety Report 6804803-5 (Version None)
Quarter: 2010Q2

REPORT INFORMATION
  Report Type: 
  Country: None (occurrence: None)
  Receive Date: 20100628
  Receipt Date: 20100617
  Transmission Date: 20101027
  Serious: Yes (Hospitalization)
  Sender: FDA-Public Use
  Company Number: CO-ROCHE-709836

PATIENT
  Sex: Female

DRUGS (4)
  1. CELLCEPT [Suspect]
     Dosage: FREQENCY: OD
     Route: 048
     Dates: start: 20070222, end: 20100126
  2. PREDNISOLONE [Concomitant]
     Dosage: FREQUENCY:QD
     Route: 048
  3. CALCITRIOL [Concomitant]
     Dosage: DOSE:0.25 MCG
     Route: 048
  4. CALCIUM CARBONATE [Concomitant]
     Dosage: FREQUENCY:QD
     Route: 048

REACTIONS (1)
  - TRANSPLANT REJECTION [None]
